FAERS Safety Report 6330402-8 (Version None)
Quarter: 2009Q3

REPORT INFORMATION
  Report Type: 
  Country: None (occurrence: None)
  Receive Date: 20090826
  Receipt Date: 20090826
  Transmission Date: 20100115
  Serious: Yes (Hospitalization)
  Sender: FDA-Public Use
  Company Number: None

PATIENT
  Age: 77 Year
  Sex: Female
  Weight: 58.514 kg

DRUGS (1)
  1. TAMIFLU [Suspect]
     Indication: UPPER RESPIRATORY TRACT INFECTION
     Dosage: 1 PILL TWICE DAILY
     Dates: start: 20090729, end: 20090803

REACTIONS (1)
  - CEREBROVASCULAR ACCIDENT [None]
